FAERS Safety Report 5019573-3 (Version None)
Quarter: 2006Q2

REPORT INFORMATION
  Report Type: 
  Country: None (occurrence: None)
  Receive Date: 20060531
  Receipt Date: 20060520
  Transmission Date: 20061013
  Serious: Yes (Hospitalization)
  Sender: FDA-Public Use
  Company Number: 200612145GDS

PATIENT
  Age: 65 Year
  Sex: Female

DRUGS (7)
  1. ASPIRIN [Suspect]
     Indication: RHEUMATOID ARTHRITIS
     Dosage: 100 MG, QD, ORAL
     Route: 048
     Dates: start: 20040101
  2. MEDROL ACETATE [Suspect]
     Indication: RHEUMATOID ARTHRITIS
     Dosage: 8 MG, QD, ORAL
     Route: 048
     Dates: start: 20040101
  3. METHOTREXATE [Suspect]
     Indication: RHEUMATOID ARTHRITIS
     Dates: start: 20040101
  4. CLOROCHINA BAYER (CHLOROQUINE) (CHLOROQUINE) [Suspect]
     Indication: RHEUMATOID ARTHRITIS
     Dosage: 250 MG, QD, ORAL
     Route: 048
     Dates: start: 20040101
  5. FOLINA [Concomitant]
  6. VOLTAREN [Concomitant]
  7. ADRONAT [Concomitant]

REACTIONS (3)
  - ANOREXIA [None]
  - DYSPEPSIA [None]
  - VOMITING [None]
